FAERS Safety Report 4679748-X (Version None)
Quarter: 2005Q2

REPORT INFORMATION
  Report Type: 
  Country: None (occurrence: None)
  Receive Date: 20050602
  Receipt Date: 20050512
  Transmission Date: 20051028
  Serious: Yes (Hospitalization)
  Sender: FDA-Public Use
  Company Number: JP-ROCHE-404721

PATIENT
  Age: 92 Year
  Sex: Male

DRUGS (7)
  1. TAMIFLU [Suspect]
     Indication: INFLUENZA
     Route: 048
     Dates: start: 20050430, end: 20050430
  2. TAMIFLU [Suspect]
     Route: 048
     Dates: start: 20050501, end: 20050502
  3. BRUFEN [Suspect]
     Indication: DRUG USE FOR UNKNOWN INDICATION
     Route: 048
     Dates: start: 20050430, end: 20050503
  4. NICARDIPINE HCL [Concomitant]
     Route: 048
  5. TRANSAMIN [Concomitant]
     Route: 048
     Dates: start: 20050430, end: 20050503
  6. DASEN [Concomitant]
     Route: 048
     Dates: start: 20050430, end: 20050503
  7. DEXTROMETHORPHAN HYDROBROMIDE [Concomitant]
     Dosage: DRUG NAME REPORTED AS DETOMEFAN.
     Route: 048
     Dates: start: 20050430, end: 20050503

REACTIONS (1)
  - INTERSTITIAL LUNG DISEASE [None]
